FAERS Safety Report 5230422-0 (Version None)
Quarter: 2007Q1

REPORT INFORMATION
  Report Type: 
  Country: None (occurrence: None)
  Receive Date: 20070206
  Receipt Date: 20070130
  Transmission Date: 20070707
  Serious: Yes (Other)
  Sender: FDA-Public Use
  Company Number: PHBS2007FI02008

PATIENT
  Age: 42 Year
  Sex: Female

DRUGS (2)
  1. ZOLT [Concomitant]
     Indication: PROPHYLAXIS
     Dosage: 30 MG/DAY
     Dates: start: 20070122, end: 20070129
  2. DICLOFENAC SODIUM [Suspect]
     Indication: PLANTAR FASCIITIS
     Dosage: 75 MG, BID
     Route: 048
     Dates: start: 20070123, end: 20070129

REACTIONS (6)
  - FACE OEDEMA [None]
  - GLYCOSYLATED HAEMOGLOBIN INCREASED [None]
  - HALLUCINATION, AUDITORY [None]
  - INTESTINAL HAEMORRHAGE [None]
  - NIGHTMARE [None]
  - RASH PRURITIC [None]
